FAERS Safety Report 24825662 (Version 1)
Quarter: 2025Q1

REPORT INFORMATION
  Report Type: Spontaneous
  Country: US (occurrence: US)
  Receive Date: 20250109
  Receipt Date: 20250109
  Transmission Date: 20250409
  Serious: No
  Sender: PFIZER
  Company Number: US-PFIZER INC-202500004483

PATIENT
  Age: 55 Year
  Sex: Female
  Weight: 59 kg

DRUGS (4)
  1. XALKORI [Suspect]
     Active Substance: CRIZOTINIB
     Indication: Metastatic neoplasm
  2. XALKORI [Suspect]
     Active Substance: CRIZOTINIB
     Indication: Non-small cell lung cancer
  3. XGEVA [Suspect]
     Active Substance: DENOSUMAB
     Indication: Metastatic neoplasm
  4. XGEVA [Suspect]
     Active Substance: DENOSUMAB
     Indication: Pain

REACTIONS (1)
  - Neoplasm progression [Unknown]
